FAERS Safety Report 19508011 (Version 1)
Quarter: 2021Q3

REPORT INFORMATION
  Report Type: Spontaneous
  Country: US (occurrence: US)
  Receive Date: 20210708
  Receipt Date: 20210708
  Transmission Date: 20211014
  Serious: No
  Sender: FDA-Public Use
  Company Number: US-TAKEDA-2021TUS041494

PATIENT

DRUGS (1)
  1. VYVANSE [Suspect]
     Active Substance: LISDEXAMFETAMINE DIMESYLATE
     Indication: PRODUCT USED FOR UNKNOWN INDICATION
     Dosage: 70 MILLIGRAM
     Route: 065
     Dates: start: 20210504

REACTIONS (12)
  - Headache [Unknown]
  - Mental disability [Unknown]
  - Hypersomnia [Unknown]
  - Condition aggravated [Unknown]
  - Nausea [Unknown]
  - Eye disorder [None]
  - Swollen tongue [Unknown]
  - Tongue disorder [Unknown]
  - Drug ineffective [Unknown]
  - Hypersensitivity [Unknown]
  - Irritability [Unknown]
  - Hypoaesthesia [Unknown]
